FAERS Safety Report 4356609-7 (Version None)
Quarter: 2004Q2

REPORT INFORMATION
  Report Type: 
  Country: None (occurrence: None)
  Receive Date: 20040507
  Receipt Date: 20040415
  Transmission Date: 20050107
  Serious: Yes (Death, Other)
  Sender: FDA-Public Use
  Company Number: CA_040406867

PATIENT
  Sex: Female

DRUGS (1)
  1. XIGRIS [Suspect]

REACTIONS (2)
  - ENDOCARDITIS [None]
  - HAEMORRHAGE INTRACRANIAL [None]
